FAERS Safety Report 17155427 (Version 1)
Quarter: 2019Q4

REPORT INFORMATION
  Report Type: Spontaneous
  Country: US (occurrence: US)
  Receive Date: 20191215
  Receipt Date: 20191215
  Transmission Date: 20200122
  Serious: No
  Sender: FDA-Public Use
  Company Number: US-ENDO PHARMACEUTICALS INC-2019-101533

PATIENT
  Sex: Male
  Weight: 67.12 kg

DRUGS (1)
  1. XIAFLEX [Suspect]
     Active Substance: COLLAGENASE CLOSTRIDIUM HISTOLYTICUM
     Indication: PEYRONIE^S DISEASE
     Dosage: UNK UNKNOWN, FIRST CYCLE; FIRST INJECTION
     Route: 026
     Dates: start: 2018

REACTIONS (5)
  - Testicular pain [Recovered/Resolved]
  - Genital contusion [Recovered/Resolved]
  - Penile pain [Recovered/Resolved]
  - Nodule [Not Recovered/Not Resolved]
  - Penile contusion [Recovered/Resolved]

NARRATIVE: CASE EVENT DATE: 2018
